FAERS Safety Report 5852323-7 (Version None)
Quarter: 2008Q3

REPORT INFORMATION
  Report Type: 
  Country: None (occurrence: None)
  Receive Date: 20080821
  Receipt Date: 20080812
  Transmission Date: 20090109
  Serious: Yes (Other)
  Sender: FDA-Public Use
  Company Number: PHHY2008GB18417

PATIENT
  Sex: Male

DRUGS (1)
  1. CLOZARIL [Suspect]
     Indication: SCHIZOPHRENIA
     Dosage: 25 MG, BID
     Route: 048
     Dates: start: 20080707

REACTIONS (9)
  - DIZZINESS [None]
  - DYSARTHRIA [None]
  - HYPOKINESIA [None]
  - NERVOUSNESS [None]
  - SALIVARY HYPERSECRETION [None]
  - SCHIZOPHRENIA [None]
  - SEDATION [None]
  - TACHYCARDIA [None]
  - VOLUME BLOOD DECREASED [None]
